FAERS Safety Report 25753184 (Version 2)
Quarter: 2025Q4

REPORT INFORMATION
  Report Type: Spontaneous
  Country: JP (occurrence: JP)
  Receive Date: 20250902
  Receipt Date: 20251002
  Transmission Date: 20260119
  Serious: Yes (Other)
  Sender: AMGEN
  Company Number: JP-DSJP-DS-2025-162107-

PATIENT
  Age: 67 Year
  Sex: Female

DRUGS (5)
  1. DENOSUMAB [Suspect]
     Active Substance: DENOSUMAB
     Indication: Osteoporosis
     Dosage: 60 MG, ONCE EVERY 6 MO
     Route: 058
     Dates: start: 20190713, end: 20190713
  2. DENOSUMAB [Suspect]
     Active Substance: DENOSUMAB
     Dosage: 60 MG, ONCE EVERY 6 MO
     Route: 058
  3. DENOSUMAB [Suspect]
     Active Substance: DENOSUMAB
     Dosage: 60 MG, ONCE EVERY 6 MO
     Route: 058
  4. DENOSUMAB [Suspect]
     Active Substance: DENOSUMAB
     Dosage: 60 MG, ONCE EVERY 6 MO
     Route: 058
  5. DENOSUMAB [Suspect]
     Active Substance: DENOSUMAB
     Dosage: 60 MG, ONCE EVERY 6 MO
     Route: 058
     Dates: start: 20210713, end: 20210713

REACTIONS (1)
  - Compression fracture [Unknown]

NARRATIVE: CASE EVENT DATE: 20220323
